FAERS Safety Report 16715513 (Version 1)
Quarter: 2019Q3

REPORT INFORMATION
  Report Type: Report from Study
  Country: BR (occurrence: BR)
  Receive Date: 20190819
  Receipt Date: 20190819
  Transmission Date: 20191005
  Serious: Yes (Other)
  Sender: FDA-Public Use
  Company Number: BR-JNJFOC-20190542071

PATIENT
  Age: 2 Decade
  Sex: Male
  Weight: 87 kg

DRUGS (4)
  1. INVEGA SUSTENNA [Suspect]
     Active Substance: PALIPERIDONE PALMITATE
     Indication: SCHIZOPHRENIA
     Route: 030
     Dates: start: 20181005
  2. DEPAKOTE [Concomitant]
     Active Substance: DIVALPROEX SODIUM
     Route: 065
  3. INVEGA SUSTENNA [Suspect]
     Active Substance: PALIPERIDONE PALMITATE
     Route: 030
     Dates: start: 20181025
  4. ATENSINA [Concomitant]
     Active Substance: CLONIDINE

REACTIONS (8)
  - Aggression [Unknown]
  - Hypersomnia [Not Recovered/Not Resolved]
  - Nightmare [Not Recovered/Not Resolved]
  - Weight increased [Unknown]
  - Tinnitus [Not Recovered/Not Resolved]
  - Abdominal distension [Unknown]
  - Pain [Not Recovered/Not Resolved]
  - Irritability [Unknown]
